FAERS Safety Report 12270112 (Version 1)
Quarter: 2016Q2

REPORT INFORMATION
  Report Type: Spontaneous
  Country: SE (occurrence: SE)
  Receive Date: 20160415
  Receipt Date: 20160415
  Transmission Date: 20160815
  Serious: Yes (Hospitalization)
  Sender: FDA-Public Use
  Company Number: SE-TEVA-650489ISR

PATIENT
  Age: 68 Year
  Sex: Female

DRUGS (1)
  1. DOXORUBICIN [Suspect]
     Active Substance: DOXORUBICIN

REACTIONS (7)
  - Sensation of foreign body [Recovered/Resolved]
  - Blood pressure decreased [Recovered/Resolved]
  - Erythema [Recovered/Resolved]
  - Chest discomfort [Recovered/Resolved]
  - Back pain [Recovered/Resolved]
  - Hypersensitivity [Recovered/Resolved]
  - Ocular hyperaemia [Recovered/Resolved]
